FAERS Safety Report 8585754-5 (Version None)
Quarter: 2012Q3

REPORT INFORMATION
  Report Type: 
  Country: None (occurrence: None)
  Receive Date: 20120810
  Receipt Date: 20120731
  Transmission Date: 20120928
  Serious: Yes (Hospitalization)
  Sender: FDA-Public Use
  Company Number: US-BAYER-2012-078913

PATIENT
  Age: 47 Year
  Sex: Female
  Weight: 88.8 kg

DRUGS (6)
  1. YAZ [Suspect]
  2. YASMIN [Suspect]
  3. NORCO [Concomitant]
  4. TORADOL [Concomitant]
  5. BEYAZ [Suspect]
  6. MORPHINE [Concomitant]

REACTIONS (1)
  - PULMONARY EMBOLISM [None]
